FAERS Safety Report 5484340-3 (Version None)
Quarter: 2007Q4

REPORT INFORMATION
  Report Type: 
  Country: None (occurrence: None)
  Receive Date: 20071010
  Receipt Date: 20070925
  Transmission Date: 20080405
  Serious: Yes (Death)
  Sender: FDA-Public Use
  Company Number: 2007S1008995

PATIENT
  Sex: Male

DRUGS (4)
  1. FENTANYL TRANSDERMAL SYSTEM [Suspect]
     Dosage: 75 UG/HR; TRANSDERMAL
     Route: 062
  2. ROBAXIN /00047901/ (CON.) [Concomitant]
  3. ALCOHOL /00002101/ (CON.) [Concomitant]
  4. PERCOCET /00446701/ (CON.) [Concomitant]

REACTIONS (4)
  - ABASIA [None]
  - ALCOHOL USE [None]
  - ANALGESIC DRUG LEVEL INCREASED [None]
  - APHASIA [None]
